FAERS Safety Report 9761271 (Version 1)
Quarter: 2013Q4

REPORT INFORMATION
  Report Type: Spontaneous
  Country: None (occurrence: US)
  Receive Date: 20131216
  Receipt Date: 20131216
  Transmission Date: 20140711
  Serious: No
  Sender: FDA-Public Use
  Company Number: US-FOUGERA-2013FO000218

PATIENT
  Sex: Female

DRUGS (1)
  1. SOLARAZE [Suspect]
     Indication: PRODUCT USED FOR UNKNOWN INDICATION
     Route: 061
     Dates: start: 201306

REACTIONS (1)
  - Application site rash [Not Recovered/Not Resolved]
